FAERS Safety Report 10330142 (Version 5)
Quarter: 2014Q3

REPORT INFORMATION
  Report Type: Spontaneous
  Country: US (occurrence: US)
  Receive Date: 20140721
  Receipt Date: 20140827
  Transmission Date: 20150326
  Serious: Yes (Hospitalization)
  Sender: FDA-Public Use
  Company Number: US-ACTELION-A-US2014-102081

PATIENT
  Age: 22 Year
  Sex: Female

DRUGS (4)
  1. SILDENAFIL [Concomitant]
     Active Substance: SILDENAFIL
  2. COUMADIN [Concomitant]
     Active Substance: WARFARIN SODIUM
  3. REMODULIN [Concomitant]
     Active Substance: TREPROSTINIL
  4. TRACLEER [Suspect]
     Active Substance: BOSENTAN\BOSENTAN MONOHYDRATE
     Indication: PULMONARY ARTERIAL HYPERTENSION
     Dosage: 125 MG, BID
     Route: 048
     Dates: start: 200606

REACTIONS (6)
  - Device related infection [Unknown]
  - Device leakage [Recovering/Resolving]
  - Catheter culture positive [Recovering/Resolving]
  - Catheter site infection [Unknown]
  - Hypersensitivity [Unknown]
  - Blister [Unknown]

NARRATIVE: CASE EVENT DATE: 20140707
